FAERS Safety Report 9288241 (Version 4)
Quarter: 2013Q3

REPORT INFORMATION
  Report Type: Spontaneous
  Country: US (occurrence: US)
  Receive Date: 20130514
  Receipt Date: 20130807
  Transmission Date: 20140515
  Serious: Yes (Other)
  Sender: FDA-Public Use
  Company Number: US-PFIZER INC-2013146876

PATIENT
  Age: 24 Year
  Sex: Male
  Weight: 81.63 kg

DRUGS (3)
  1. EFFEXOR XR [Suspect]
     Indication: NARCOLEPSY
     Dosage: 150 MG, 1X/DAY IN THE MORNING
     Route: 048
     Dates: start: 2003
  2. EFFEXOR XR [Suspect]
     Indication: CATAPLEXY
  3. PROVIGIL [Concomitant]
     Indication: WAXY FLEXIBILITY
     Dosage: UNK

REACTIONS (2)
  - Drug dependence [Unknown]
  - Off label use [Unknown]
